FAERS Safety Report 15832878 (Version 2)
Quarter: 2019Q1

REPORT INFORMATION
  Report Type: Spontaneous
  Country: US (occurrence: US)
  Receive Date: 20190116
  Receipt Date: 20190225
  Transmission Date: 20190417
  Serious: Yes (Death, Hospitalization, Other)
  Sender: FDA-Public Use
  Company Number: US-JUBILANT CADISTA PHARMACEUTICALS-2019JUB00003

PATIENT
  Age: 58 Year
  Sex: Female
  Weight: 84.2 kg

DRUGS (3)
  1. PREDNISONE. [Suspect]
     Active Substance: PREDNISONE
     Indication: CHRONIC GRAFT VERSUS HOST DISEASE
     Dosage: 2.5 MG, 3X/DAY
     Route: 048
     Dates: start: 20180711, end: 20180723
  2. PREDNISONE. [Suspect]
     Active Substance: PREDNISONE
     Dosage: 5 MG, 1X/DAY
     Route: 048
     Dates: start: 20180711, end: 20180723
  3. IBRUTINIB [Suspect]
     Active Substance: IBRUTINIB
     Indication: CHRONIC GRAFT VERSUS HOST DISEASE
     Dosage: 420 MG, 1X/DAY
     Route: 048
     Dates: start: 20180315, end: 20180724

REACTIONS (9)
  - Hypoglycaemia [Recovered/Resolved]
  - Asthenia [Unknown]
  - Acute kidney injury [Not Recovered/Not Resolved]
  - Diarrhoea haemorrhagic [Recovered/Resolved]
  - Septic shock [Fatal]
  - Pneumonia [Unknown]
  - Prothrombin time ratio increased [Unknown]
  - Gastrointestinal haemorrhage [Recovered/Resolved]
  - Platelet count decreased [Unknown]

NARRATIVE: CASE EVENT DATE: 20180723
